FAERS Safety Report 14577947 (Version 1)
Quarter: 2018Q1

REPORT INFORMATION
  Report Type: Other
  Country: GB (occurrence: GB)
  Receive Date: 20180227
  Receipt Date: 20180227
  Transmission Date: 20180509
  Serious: Yes (Hospitalization, Other)
  Sender: FDA-Public Use
  Company Number: GB-BECTON DICKINSON-2018BDN00025

PATIENT
  Age: 1 Day
  Sex: Male
  Weight: 1.3 kg

DRUGS (4)
  1. GENTAMICIN. [Concomitant]
     Active Substance: GENTAMICIN
  2. CHLORAPREP [Suspect]
     Active Substance: CHLORHEXIDINE GLUCONATE\ISOPROPYL ALCOHOL
     Indication: INFECTION PROPHYLAXIS
     Dosage: 2% W/V
     Route: 061
     Dates: start: 20180128, end: 20180128
  3. BENZYLPENICILLIN SODIUM [Concomitant]
     Active Substance: PENICILLIN G SODIUM
  4. CUROSURF [Concomitant]
     Active Substance: PORACTANT ALFA

REACTIONS (5)
  - Application site burn [Not Recovered/Not Resolved]
  - Erythema [Unknown]
  - Skin disorder [Unknown]
  - Application site vesicles [Unknown]
  - Blister [Unknown]

NARRATIVE: CASE EVENT DATE: 20180128
